APPROVED DRUG PRODUCT: FAMOTIDINE
Active Ingredient: FAMOTIDINE
Strength: 40MG
Dosage Form/Route: TABLET;ORAL
Application: A075650 | Product #002
Applicant: ACTAVIS ELIZABETH LLC
Approved: Sep 14, 2001 | RLD: No | RS: No | Type: DISCN